FAERS Safety Report 13255008 (Version 1)
Quarter: 2017Q1

REPORT INFORMATION
  Report Type: Report from Study
  Country: US (occurrence: US)
  Receive Date: 20170221
  Receipt Date: 20170221
  Transmission Date: 20170428
  Serious: Yes (Hospitalization, Other)
  Sender: FDA-Public Use
  Company Number: US-AMGEN-USASL2017024523

PATIENT
  Age: 58 Year
  Sex: Female

DRUGS (1)
  1. NEULASTA [Suspect]
     Active Substance: PEGFILGRASTIM
     Indication: BREAST CANCER
     Dosage: UNK
     Route: 065

REACTIONS (8)
  - Myocardial infarction [Unknown]
  - Hospitalisation [Unknown]
  - Critical illness [Unknown]
  - Injection site coldness [Unknown]
  - Mobility decreased [Not Recovered/Not Resolved]
  - Feeding disorder [Unknown]
  - Asthenia [Not Recovered/Not Resolved]
  - Post-traumatic stress disorder [Unknown]
